FAERS Safety Report 6284390-3 (Version None)
Quarter: 2009Q3

REPORT INFORMATION
  Report Type: 
  Country: None (occurrence: None)
  Receive Date: 20090727
  Receipt Date: 20090717
  Transmission Date: 20100115
  Serious: Yes (Other)
  Sender: FDA-Public Use
  Company Number: BR-ROCHE-640682

PATIENT
  Sex: Male
  Weight: 95 kg

DRUGS (5)
  1. ORLISTAT [Suspect]
     Indication: WEIGHT CONTROL
     Dosage: FREQUENCY: EVERY DAY AFTER LUNCH AND WHEN ^HE EATS A LOT^.
     Route: 048
     Dates: start: 20070101
  2. ARADOIS [Concomitant]
     Indication: HYPERTENSION
     Dosage: DRUG: ARADOIS (LOSARTAN POTASSIUM)
  3. AMLODIPINE [Concomitant]
     Indication: HYPERTENSION
  4. ATORVASTATIN CALCIUM [Concomitant]
  5. GLIFAGE [Concomitant]

REACTIONS (2)
  - DYSCHEZIA [None]
  - POLYP [None]
